FAERS Safety Report 11382891 (Version 1)
Quarter: 2015Q3

REPORT INFORMATION
  Report Type: Report from Study
  Country: US (occurrence: US)
  Receive Date: 20150814
  Receipt Date: 20150814
  Transmission Date: 20151125
  Serious: Yes (Death, Hospitalization, Other)
  Sender: FDA-Public Use
  Company Number: US-ASTRAZENECA-2015SE53413

PATIENT
  Age: 23172 Day
  Sex: Female

DRUGS (2)
  1. LYNPARZA [Suspect]
     Active Substance: OLAPARIB
     Indication: OVARIAN CANCER
     Route: 048
  2. LYNPARZA [Suspect]
     Active Substance: OLAPARIB
     Indication: OVARIAN CANCER
     Route: 048

REACTIONS (12)
  - Herpes simplex [Unknown]
  - Vomiting [Recovered/Resolved]
  - Nausea [Recovered/Resolved]
  - Abdominal pain upper [Unknown]
  - Fatigue [Not Recovered/Not Resolved]
  - Small intestinal obstruction [Unknown]
  - Gastrooesophageal reflux disease [Not Recovered/Not Resolved]
  - Dyspepsia [Recovered/Resolved]
  - Ovarian cancer [Fatal]
  - Malignant neoplasm progression [Unknown]
  - Oesophageal ulcer [Unknown]
  - Abdominal discomfort [Not Recovered/Not Resolved]

NARRATIVE: CASE EVENT DATE: 20150306
